FAERS Safety Report 8034256-3 (Version None)
Quarter: 2012Q1

REPORT INFORMATION
  Report Type: 
  Country: None (occurrence: None)
  Receive Date: 20120110
  Receipt Date: 20120105
  Transmission Date: 20120608
  Serious: Yes (Disabling)
  Sender: FDA-Public Use
  Company Number: PHHY2011NL104690

PATIENT
  Sex: Male
  Weight: 78 kg

DRUGS (6)
  1. SIMVASTATIN [Concomitant]
     Dosage: 40 MG, UNK
  2. ENALAPRIL MALEATE [Concomitant]
     Dosage: 20 MG, UNK
  3. TASIGNA [Suspect]
     Indication: CHRONIC MYELOID LEUKAEMIA
     Dosage: 300 MG, BID
     Route: 048
     Dates: start: 20111101, end: 20111118
  4. TASIGNA [Suspect]
     Dosage: 300 MG, BID
     Route: 048
     Dates: start: 20111125, end: 20111207
  5. METOPROLOL SUCCINATE [Concomitant]
     Dosage: 100 MG, UNK
  6. TASIGNA [Suspect]
     Dosage: UNK

REACTIONS (7)
  - NAUSEA [None]
  - DIZZINESS [None]
  - BLUE TOE SYNDROME [None]
  - VOMITING [None]
  - PERIPHERAL ARTERIAL OCCLUSIVE DISEASE [None]
  - PAIN IN EXTREMITY [None]
  - BLOOD CREATININE INCREASED [None]
